FAERS Safety Report 24127034 (Version 1)
Quarter: 2024Q3

REPORT INFORMATION
  Report Type: Spontaneous
  Country: US (occurrence: None)
  Receive Date: 20240723
  Receipt Date: 20240723
  Transmission Date: 20241017
  Serious: No
  Sender: Public
  Company Number: None

PATIENT
  Age: 35 Year
  Sex: Male

DRUGS (1)
  1. AJOVY [Suspect]
     Active Substance: FREMANEZUMAB-VFRM
     Indication: Migraine
     Dosage: 225 MG OTHER CUTANEOUS?
     Route: 003
     Dates: start: 20240412, end: 20240715

REACTIONS (2)
  - Pruritus [None]
  - Arthralgia [None]

NARRATIVE: CASE EVENT DATE: 20240614
